FAERS Safety Report 11372347 (Version 1)
Quarter: 2015Q3

REPORT INFORMATION
  Report Type: Spontaneous
  Country: US (occurrence: US)
  Receive Date: 20150811
  Receipt Date: 20150811
  Transmission Date: 20151125
  Serious: No
  Sender: FDA-Public Use
  Company Number: US-ELI_LILLY_AND_COMPANY-US201301000235

PATIENT
  Age: 40 Year
  Sex: Male

DRUGS (1)
  1. AXIRON [Suspect]
     Active Substance: TESTOSTERONE

REACTIONS (6)
  - Erectile dysfunction [Unknown]
  - Drug ineffective [Unknown]
  - Intentional product misuse [Unknown]
  - Body height decreased [Unknown]
  - Depressed mood [Unknown]
  - Asthenia [Unknown]
